FAERS Safety Report 15090183 (Version 1)
Quarter: 2018Q2

REPORT INFORMATION
  Report Type: Spontaneous
  Country: DE (occurrence: DE)
  Receive Date: 20180629
  Receipt Date: 20180629
  Transmission Date: 20180711
  Serious: Yes (Hospitalization, Other)
  Sender: FDA-Public Use
  Company Number: DE-FERRINGPH-2018FE03307

PATIENT

DRUGS (3)
  1. MINIRIN [Interacting]
     Active Substance: DESMOPRESSIN ACETATE
     Dosage: THE FIRST TWO DAYS 100 MG/DAY
     Route: 065
     Dates: start: 2018
  2. MINIRIN [Suspect]
     Active Substance: DESMOPRESSIN ACETATE
     Indication: PRODUCT USED FOR UNKNOWN INDICATION
     Dosage: ON THE THIRD DAY 50 MG/DAY
     Route: 065
     Dates: start: 2018
  3. BISOPROLOL [Interacting]
     Active Substance: BISOPROLOL
     Indication: TACHYCARDIA
     Dosage: 1.25 MG, DAILY

REACTIONS (2)
  - Bradycardia [Unknown]
  - Drug interaction [Unknown]

NARRATIVE: CASE EVENT DATE: 2018
